FAERS Safety Report 11707013 (Version 5)
Quarter: 2017Q3

REPORT INFORMATION
  Report Type: Spontaneous
  Country: US (occurrence: US)
  Receive Date: 20151106
  Receipt Date: 20170919
  Transmission Date: 20171127
  Serious: No
  Sender: FDA-Public Use
  Company Number: US-ACTELION PHARMACEUTICALS US, INC.-A-US2015-126831

PATIENT
  Age: 75 Year
  Sex: Female

DRUGS (21)
  1. OPSUMIT [Suspect]
     Active Substance: MACITENTAN
     Indication: PULMONARY ARTERIAL HYPERTENSION
     Dosage: 10 MG, QD
     Route: 048
     Dates: start: 20141002
  2. VOLTAREN [Concomitant]
     Active Substance: DICLOFENAC SODIUM
  3. VENTOLIN [Concomitant]
     Active Substance: ALBUTEROL SULFATE
  4. CRESTOR [Concomitant]
     Active Substance: ROSUVASTATIN CALCIUM
  5. ACETAZOLAMIDE. [Concomitant]
     Active Substance: ACETAZOLAMIDE
  6. ALPRAZOLAM. [Concomitant]
     Active Substance: ALPRAZOLAM
  7. OXYGEN. [Concomitant]
     Active Substance: OXYGEN
  8. RIOCIGUAT [Concomitant]
     Active Substance: RIOCIGUAT
  9. COUMADIN [Concomitant]
     Active Substance: WARFARIN SODIUM
  10. VITAMIN D [Concomitant]
     Active Substance: CHOLECALCIFEROL
  11. OXYCONTIN [Concomitant]
     Active Substance: OXYCODONE HYDROCHLORIDE
  12. JANUVIA [Concomitant]
     Active Substance: SITAGLIPTIN PHOSPHATE
  13. BELVIQ [Concomitant]
     Active Substance: LORCASERIN HYDROCHLORIDE
  14. FLUOXETINE [Concomitant]
     Active Substance: FLUOXETINE HYDROCHLORIDE
  15. SYNTHROID [Concomitant]
     Active Substance: LEVOTHYROXINE SODIUM
  16. NASONEX [Concomitant]
     Active Substance: MOMETASONE FUROATE
  17. LANTUS [Concomitant]
     Active Substance: INSULIN GLARGINE
  18. FUROSEMIDE. [Concomitant]
     Active Substance: FUROSEMIDE
  19. RECLAST [Concomitant]
     Active Substance: ZOLEDRONIC ACID
  20. DOXEPIN [Concomitant]
     Active Substance: DOXEPIN
  21. ATENOLOL. [Concomitant]
     Active Substance: ATENOLOL

REACTIONS (6)
  - Dysuria [Not Recovered/Not Resolved]
  - Dyspnoea [Unknown]
  - Swelling [Unknown]
  - Lower respiratory tract infection [Not Recovered/Not Resolved]
  - Epistaxis [Recovered/Resolved]
  - Extra dose administered [Recovered/Resolved]

NARRATIVE: CASE EVENT DATE: 201510
